FAERS Safety Report 10050778 (Version 1)
Quarter: 2014Q2

REPORT INFORMATION
  Report Type: Spontaneous
  Country: US (occurrence: US)
  Receive Date: 20140401
  Receipt Date: 20140401
  Transmission Date: 20141212
  Serious: No
  Sender: FDA-Public Use
  Company Number: US-ASTRAZENECA-2013SE77001

PATIENT
  Age: 23819 Day
  Sex: Male
  Weight: 91.6 kg

DRUGS (4)
  1. NEXIUM [Suspect]
     Indication: GASTROOESOPHAGEAL REFLUX DISEASE
     Route: 048
     Dates: start: 2010, end: 201310
  2. NEXIUM [Suspect]
     Indication: GASTROOESOPHAGEAL REFLUX DISEASE
     Route: 048
     Dates: start: 201310
  3. ALLOPURINOL [Concomitant]
     Indication: GOUT
     Dosage: PRN
     Route: 048
  4. CIALIS [Concomitant]
     Indication: PRODUCT USED FOR UNKNOWN INDICATION
     Dosage: PRN
     Route: 048

REACTIONS (5)
  - Tinnitus [Recovering/Resolving]
  - Ear disorder [Unknown]
  - Weight loss diet [Unknown]
  - Drug dose omission [Unknown]
  - Intentional product misuse [Unknown]
